FAERS Safety Report 8302264-0 (Version None)
Quarter: 2012Q2

REPORT INFORMATION
  Report Type: 
  Country: None (occurrence: None)
  Receive Date: 20120420
  Receipt Date: 20120413
  Transmission Date: 20120825
  Serious: Yes (Hospitalization)
  Sender: FDA-Public Use
  Company Number: GB-ABBOTT-12P-167-0926532-00

PATIENT
  Sex: Male

DRUGS (3)
  1. LEUPROLIDE ACETATE [Suspect]
     Route: 065
     Dates: start: 20040101, end: 20070101
  2. LEUPROLIDE ACETATE [Suspect]
     Indication: PROSTATE CANCER
     Route: 065
     Dates: start: 20010101
  3. LEUPROLIDE ACETATE [Suspect]
     Route: 065
     Dates: start: 20111101

REACTIONS (3)
  - ANXIETY [None]
  - PARAESTHESIA [None]
  - STRESS [None]
